FAERS Safety Report 6908555-X (Version None)
Quarter: 2010Q3

REPORT INFORMATION
  Report Type: 
  Country: None (occurrence: None)
  Receive Date: 20100805
  Receipt Date: 20100727
  Transmission Date: 20110219
  Serious: Yes (Other)
  Sender: FDA-Public Use
  Company Number: US-PFIZER INC-2010093961

PATIENT
  Sex: Male

DRUGS (4)
  1. XANAX [Suspect]
     Dosage: UNK
  2. FENTANYL [Suspect]
     Dosage: UNK
  3. RISPERDAL [Suspect]
     Dosage: UNK
  4. OXYCODONE [Suspect]
     Dosage: UNK

REACTIONS (1)
  - BRAIN DEATH [None]
